FAERS Safety Report 19058181 (Version 1)
Quarter: 2021Q1

REPORT INFORMATION
  Report Type: Spontaneous
  Country: US (occurrence: US)
  Receive Date: 20210324
  Receipt Date: 20210324
  Transmission Date: 20210420
  Serious: No
  Sender: FDA-Public Use
  Company Number: US-TEVA-2021-US-1892040

PATIENT
  Sex: Female

DRUGS (3)
  1. SULINDAC. [Suspect]
     Active Substance: SULINDAC
     Route: 065
  2. COLACE [Concomitant]
     Active Substance: DOCUSATE SODIUM
     Dosage: SOLUTION
  3. COLACE [Concomitant]
     Active Substance: DOCUSATE SODIUM
     Dosage: COLACE CLEAR

REACTIONS (3)
  - Pruritus [Recovered/Resolved]
  - Skin exfoliation [Recovered/Resolved]
  - Scratch [Recovered/Resolved]
